FAERS Safety Report 11975606 (Version 1)
Quarter: 2016Q1

REPORT INFORMATION
  Report Type: Report from Study
  Country: US (occurrence: US)
  Receive Date: 20160129
  Receipt Date: 20160129
  Transmission Date: 20160526
  Serious: No
  Sender: FDA-Public Use
  Company Number: US-AMGEN-USASL2016008372

PATIENT
  Age: 9 Year
  Sex: Female
  Weight: 42.63 kg

DRUGS (1)
  1. ENBREL [Suspect]
     Active Substance: ETANERCEPT
     Indication: DERMATOMYOSITIS
     Dosage: UNK UNK, QWK
     Route: 065
     Dates: start: 20150901

REACTIONS (1)
  - Off label use [Unknown]
